FAERS Safety Report 8087522-X (Version None)
Quarter: 2012Q1

REPORT INFORMATION
  Report Type: 
  Country: None (occurrence: None)
  Receive Date: 20120128
  Receipt Date: 20110430
  Transmission Date: 20120608
  Serious: No
  Sender: FDA-Public Use
  Company Number: US-ABBOTT-11P-163-0722987-00

PATIENT
  Age: 38 Year
  Sex: Female

DRUGS (2)
  1. HUMIRA [Suspect]
     Indication: PSORIASIS
     Dates: start: 20110424
  2. SYNTHROID [Concomitant]
     Indication: PRODUCT USED FOR UNKNOWN INDICATION
     Dosage: 88 MCG DAILY

REACTIONS (5)
  - NASOPHARYNGITIS [None]
  - NASAL CONGESTION [None]
  - DYSPNOEA [None]
  - HEADACHE [None]
  - MUSCULOSKELETAL STIFFNESS [None]
